FAERS Safety Report 17121541 (Version 1)
Quarter: 2019Q4

REPORT INFORMATION
  Report Type: Spontaneous
  Country: US (occurrence: US)
  Receive Date: 20191206
  Receipt Date: 20191206
  Transmission Date: 20200122
  Serious: No
  Sender: FDA-Public Use
  Company Number: US-ELI_LILLY_AND_COMPANY-US201911010512

PATIENT
  Age: 56 Year
  Sex: Female

DRUGS (2)
  1. BUTALBITAL;CAFFEINE;PARACETAMOL [Concomitant]
     Indication: MIGRAINE
     Dosage: UNK, PRN
  2. EMGALITY [Suspect]
     Active Substance: GALCANEZUMAB-GNLM
     Indication: MIGRAINE
     Dosage: 120 MG, MONTHLY (1/M)
     Route: 058
     Dates: start: 201908

REACTIONS (2)
  - Inappropriate schedule of product administration [Unknown]
  - Stress [Not Recovered/Not Resolved]
